FAERS Safety Report 6750408-4 (Version None)
Quarter: 2010Q2

REPORT INFORMATION
  Report Type: 
  Country: None (occurrence: None)
  Receive Date: 20100601
  Receipt Date: 20100519
  Transmission Date: 20101027
  Serious: Yes (Disabling)
  Sender: FDA-Public Use
  Company Number: CA-ELI_LILLY_AND_COMPANY-CA201005007011

PATIENT
  Age: 57 Year
  Sex: Male

DRUGS (1)
  1. ZYPREXA [Suspect]
     Indication: INSOMNIA
     Dosage: 15 MG, EACH EVENING
     Route: 048

REACTIONS (3)
  - MUSCLE RIGIDITY [None]
  - MYALGIA [None]
  - OFF LABEL USE [None]
